FAERS Safety Report 10213422 (Version 1)
Quarter: 2014Q2

REPORT INFORMATION
  Report Type: Spontaneous
  Country: IT (occurrence: IT)
  Receive Date: 20140603
  Receipt Date: 20140603
  Transmission Date: 20141212
  Serious: Yes (Death)
  Sender: FDA-Public Use
  Company Number: IT-BAYER-2014-077523

PATIENT
  Age: 79 Year
  Sex: Female

DRUGS (2)
  1. CARDIOASPIRIN [Suspect]
     Dosage: DAILY DOSE 100 MG
     Route: 048
     Dates: start: 20130101, end: 20140515
  2. DILATREND [Concomitant]
     Dosage: DAILY DOSE 6.25 MG
     Route: 048

REACTIONS (1)
  - Cerebral haemorrhage [Fatal]
